FAERS Safety Report 9710240 (Version 3)
Quarter: 2014Q1

REPORT INFORMATION
  Report Type: Spontaneous
  Country: GB (occurrence: GB)
  Receive Date: 20131126
  Receipt Date: 20140121
  Transmission Date: 20141002
  Serious: Yes (Death)
  Sender: FDA-Public Use
  Company Number: GB-JNJFOC-20131114713

PATIENT
  Sex: 0

DRUGS (6)
  1. DOXORUBICIN HYDROCHLORIDE [Suspect]
     Indication: PLASMA CELL MYELOMA RECURRENT
     Dosage: DAY 1-4
     Route: 042
  2. DOXORUBICIN HYDROCHLORIDE [Suspect]
     Indication: PLASMA CELL MYELOMA RECURRENT
     Dosage: DAY 1-4
     Route: 042
  3. BORTEZOMIB [Suspect]
     Indication: PLASMA CELL MYELOMA RECURRENT
     Dosage: DAY1, 4, 8 + 11
     Route: 042
  4. DEXAMETHASONE [Suspect]
     Indication: PLASMA CELL MYELOMA RECURRENT
     Dosage: DAY1-4;ADDITIONALLY DAY8-11 + DAY15-18 ON CYCLE 1 ONLY)
     Route: 048
  5. MELPHALAN [Suspect]
     Indication: PLASMA CELL MYELOMA RECURRENT
     Route: 042
  6. CYCLOPHOSPHAMIDE [Suspect]
     Indication: PLASMA CELL MYELOMA RECURRENT
     Dosage: FOR 12 WEEKS (C-WEEKLY)
     Route: 048

REACTIONS (1)
  - Plasma cell myeloma [Fatal]
